FAERS Safety Report 15422724 (Version 2)
Quarter: 2019Q4

REPORT INFORMATION
  Report Type: Report from Study
  Country: None (occurrence: US)
  Receive Date: 20180925
  Receipt Date: 20191219
  Transmission Date: 20200122
  Serious: Yes (Death, Hospitalization)
  Sender: FDA-Public Use
  Company Number: US-ABBVIE-18K-163-2496924-00

PATIENT
  Age: 70 Year
  Sex: Male

DRUGS (1)
  1. HUMIRA [Suspect]
     Active Substance: ADALIMUMAB
     Indication: HIDRADENITIS
     Route: 058

REACTIONS (2)
  - Infection [Fatal]
  - Cardiac failure [Fatal]

NARRATIVE: CASE EVENT DATE: 20180702
